FAERS Safety Report 6276318-7 (Version None)
Quarter: 2009Q3

REPORT INFORMATION
  Report Type: 
  Country: None (occurrence: None)
  Receive Date: 20090720
  Receipt Date: 20090720
  Transmission Date: 20100115
  Serious: Yes (Hospitalization)
  Sender: FDA-Public Use
  Company Number: None

PATIENT
  Age: 92 Year
  Sex: Male
  Weight: 70.3 kg

DRUGS (2)
  1. WARFARIN SODIUM [Suspect]
     Indication: CORONARY ARTERY DISEASE
     Dosage: 10 MG QWEEK PO
     Route: 048
     Dates: start: 20080819, end: 20090623
  2. WARFARIN SODIUM [Suspect]
     Indication: DEEP VEIN THROMBOSIS
     Dosage: 10 MG QWEEK PO
     Route: 048
     Dates: start: 20080819, end: 20090623

REACTIONS (6)
  - ASTHENIA [None]
  - COUGH [None]
  - HAEMOPTYSIS [None]
  - INTERNATIONAL NORMALISED RATIO INCREASED [None]
  - MUSCULOSKELETAL CHEST PAIN [None]
  - WHEEZING [None]
